FAERS Safety Report 25737389 (Version 4)
Quarter: 2025Q4

REPORT INFORMATION
  Report Type: Spontaneous
  Country: US (occurrence: US)
  Receive Date: 20250828
  Receipt Date: 20251029
  Transmission Date: 20260118
  Serious: Yes (Disabling, Other)
  Sender: PURDUE
  Company Number: US-PURDUE PHARMA-USA-2025-0320032

PATIENT
  Sex: Male

DRUGS (4)
  1. OXYCONTIN [Suspect]
     Active Substance: OXYCODONE HYDROCHLORIDE
     Indication: Product used for unknown indication
     Dosage: UNK
     Route: 048
  2. OXYCODONE HYDROCHLORIDE [Suspect]
     Active Substance: OXYCODONE HYDROCHLORIDE
     Indication: Product used for unknown indication
     Dosage: UNK
     Route: 048
  3. OXYCODONE HYDROCHLORIDE [Suspect]
     Active Substance: OXYCODONE HYDROCHLORIDE
     Indication: Pain
     Dosage: 30 MILLIGRAM, 90 PILLS MONTHLY (3 - 4 OXYCODONES PILLS DAILY), FROM ABOUT, (2012) EXTENDING (JAN. 20
     Route: 048
     Dates: start: 2012
  4. OXYCODONE HYDROCHLORIDE [Suspect]
     Active Substance: OXYCODONE HYDROCHLORIDE
     Dosage: 30 MILLIGRAM, 90 PILLS MONTHLY
     Route: 065
     Dates: start: 2012, end: 201709

REACTIONS (22)
  - Blindness [Unknown]
  - Cardiac disorder [Unknown]
  - Glaucoma [Unknown]
  - Drug dependence [Unknown]
  - Drug abuse [Unknown]
  - Emotional distress [Unknown]
  - Illness [Unknown]
  - Decreased appetite [Unknown]
  - Post-traumatic stress disorder [Unknown]
  - Mental disorder [Not Recovered/Not Resolved]
  - Loss of personal independence in daily activities [Not Recovered/Not Resolved]
  - Weight decreased [Unknown]
  - General physical health deterioration [Unknown]
  - Anxiety [Unknown]
  - Depression [Unknown]
  - Fatigue [Unknown]
  - Nausea [Unknown]
  - Vomiting [Unknown]
  - Injury [Unknown]
  - Social problem [Unknown]
  - Defiant behaviour [Unknown]
  - Hypertension [Not Recovered/Not Resolved]
